FAERS Safety Report 8357690-0 (Version None)
Quarter: 2012Q2

REPORT INFORMATION
  Report Type: 
  Country: None (occurrence: None)
  Receive Date: 20120514
  Receipt Date: 20120511
  Transmission Date: 20120825
  Serious: Yes (Death)
  Sender: FDA-Public Use
  Company Number: US-PFIZER INC-2012115666

PATIENT
  Sex: Female

DRUGS (1)
  1. SUTENT [Suspect]
     Indication: BONE NEOPLASM MALIGNANT
     Dosage: 50 MG, UNK
     Dates: start: 20120326, end: 20120326

REACTIONS (3)
  - NEOPLASM MALIGNANT [None]
  - PNEUMONIA [None]
  - RENAL CANCER [None]
